FAERS Safety Report 25381030 (Version 2)
Quarter: 2025Q3

REPORT INFORMATION
  Report Type: Report from Study
  Country: JP (occurrence: JP)
  Receive Date: 20250530
  Receipt Date: 20250903
  Transmission Date: 20251021
  Serious: Yes (Other)
  Sender: BAYER HEALTHCARE PHARMACEUTICALS INC.
  Company Number: JP-BAYER-2025A070755

PATIENT
  Age: 6 Decade
  Sex: Male

DRUGS (2)
  1. VITRAKVI [Suspect]
     Active Substance: LAROTRECTINIB
     Indication: Small intestine carcinoma
     Dosage: 100 MG, BID
     Route: 048
     Dates: start: 20250304
  2. VITRAKVI [Suspect]
     Active Substance: LAROTRECTINIB
     Indication: NTRK gene fusion cancer
     Dosage: 75 MG, BID
     Dates: end: 202505

REACTIONS (2)
  - Disease progression [Not Recovered/Not Resolved]
  - Dizziness [Recovered/Resolved]

NARRATIVE: CASE EVENT DATE: 20250301
